FAERS Safety Report 19415407 (Version 1)
Quarter: 2021Q2

REPORT INFORMATION
  Report Type: Spontaneous
  Country: BR (occurrence: BR)
  Receive Date: 20210614
  Receipt Date: 20210614
  Transmission Date: 20210717
  Serious: Yes (Hospitalization)
  Sender: FDA-Public Use
  Company Number: BR-NOVOPROD-813922

PATIENT
  Age: 40 Year
  Sex: Male
  Weight: 179 kg

DRUGS (14)
  1. SAXENDA [Suspect]
     Active Substance: LIRAGLUTIDE
     Dosage: 1.2 MG
     Route: 065
     Dates: start: 201610
  2. SAXENDA [Suspect]
     Active Substance: LIRAGLUTIDE
     Dosage: 3 MG
     Route: 065
     Dates: start: 20181023
  3. SAXENDA [Suspect]
     Active Substance: LIRAGLUTIDE
     Indication: PRODUCT USED FOR UNKNOWN INDICATION
     Dosage: UNK
     Route: 065
  4. GLIFAGE XR [Concomitant]
     Active Substance: METFORMIN HYDROCHLORIDE
     Indication: PRODUCT USED FOR UNKNOWN INDICATION
     Dosage: 2 G, QD
     Route: 065
  5. ABLOK PLUS [Concomitant]
     Active Substance: ATENOLOL\CHLORTHALIDONE
     Indication: PRODUCT USED FOR UNKNOWN INDICATION
     Dosage: 50/12,5 MG
     Route: 065
  6. BASAGLAR [Concomitant]
     Active Substance: INSULIN GLARGINE
     Dosage: 30 IU, QD
     Route: 065
  7. SAXENDA [Suspect]
     Active Substance: LIRAGLUTIDE
     Dosage: 2.4 MG
     Route: 065
     Dates: start: 20180921
  8. ATORVASTATIN [Concomitant]
     Active Substance: ATORVASTATIN
     Indication: PRODUCT USED FOR UNKNOWN INDICATION
     Dosage: 40 MG, QD
     Route: 065
  9. PIOGLITAZONE. [Concomitant]
     Active Substance: PIOGLITAZONE
     Indication: PRODUCT USED FOR UNKNOWN INDICATION
     Dosage: 30 QD
     Route: 065
  10. HUMALOG [Concomitant]
     Active Substance: INSULIN LISPRO
     Indication: PRODUCT USED FOR UNKNOWN INDICATION
     Dosage: 5 IU, TID(BEFORE BREAKFAST, LUNCH AND DINNER)
     Route: 065
  11. SAXENDA [Suspect]
     Active Substance: LIRAGLUTIDE
     Dosage: 1.8 MG
     Route: 065
  12. BASAGLAR [Concomitant]
     Active Substance: INSULIN GLARGINE
     Dosage: 20 IU, QD
     Route: 065
  13. LOSARTAN. [Concomitant]
     Active Substance: LOSARTAN
     Indication: PRODUCT USED FOR UNKNOWN INDICATION
     Dosage: 50 MG, QD
     Route: 065
  14. BASAGLAR [Concomitant]
     Active Substance: INSULIN GLARGINE
     Indication: PRODUCT USED FOR UNKNOWN INDICATION
     Dosage: 20 IU, QD BEDTIME
     Route: 065

REACTIONS (7)
  - Pneumonia [Recovered/Resolved]
  - Serum ferritin increased [Recovered/Resolved]
  - Hypoglycaemia [Recovered/Resolved]
  - Decreased appetite [Unknown]
  - Hyperglycaemia [Recovered/Resolved]
  - Haemorrhage [Recovered/Resolved]
  - Oedema peripheral [Recovered/Resolved]

NARRATIVE: CASE EVENT DATE: 20180921
